FAERS Safety Report 8693560 (Version 2)
Quarter: 2012Q4

REPORT INFORMATION
  Report Type: 
  Country: None (occurrence: None)
  Receive Date: 20120731
  Receipt Date: 20120907
  Transmission Date: 20130627
  Serious: Yes (Hospitalization, Other)
  Sender: FDA-Public Use
  Company Number: ME-PAR PHARMACEUTICAL, INC-2012SCPR004519

PATIENT

DRUGS (1)
  1. DISULFIRAM [Suspect]
     Indication: ALCOHOLISM
     Dosage: 250 mg, / day
     Route: 065

REACTIONS (3)
  - Acute polyneuropathy [Recovering/Resolving]
  - Sinus tachycardia [Unknown]
  - Anxiety [Unknown]
